FAERS Safety Report 10412410 (Version 5)
Quarter: 2018Q1

REPORT INFORMATION
  Report Type: Other
  Country: US (occurrence: US)
  Receive Date: 20140827
  Receipt Date: 20180130
  Transmission Date: 20180508
  Serious: Yes (Disabling)
  Sender: FDA-Public Use
  Company Number: US-ACORDA-ACO_105555_2014

PATIENT
  Sex: Female
  Weight: 58.05 kg

DRUGS (4)
  1. AMPYRA [Suspect]
     Active Substance: DALFAMPRIDINE
     Indication: MULTIPLE SCLEROSIS
     Dosage: 10 MG, BID
     Route: 048
  2. AMPYRA [Suspect]
     Active Substance: DALFAMPRIDINE
     Indication: GAIT DISTURBANCE
     Dosage: 10 MG, BID
     Route: 048
     Dates: end: 201408
  3. VITAMIN D [Concomitant]
     Active Substance: CHOLECALCIFEROL
     Indication: PRODUCT USED FOR UNKNOWN INDICATION
     Dosage: UNK
     Route: 065
  4. VITAMIN B [Concomitant]
     Active Substance: VITAMIN B
     Indication: PRODUCT USED FOR UNKNOWN INDICATION
     Dosage: UNK
     Route: 065

REACTIONS (11)
  - Muscular weakness [Not Recovered/Not Resolved]
  - Condition aggravated [Not Recovered/Not Resolved]
  - Balance disorder [Not Recovered/Not Resolved]
  - Therapy cessation [Recovered/Resolved]
  - Hemiplegia [Not Recovered/Not Resolved]
  - Movement disorder [Unknown]
  - Dysgraphia [Not Recovered/Not Resolved]
  - Walking aid user [Not Recovered/Not Resolved]
  - Gait disturbance [Not Recovered/Not Resolved]
  - Gait inability [Recovered/Resolved]
  - Hemiparesis [Not Recovered/Not Resolved]
